FAERS Safety Report 5475492-X (Version None)
Quarter: 2007Q4

REPORT INFORMATION
  Report Type: 
  Country: None (occurrence: None)
  Receive Date: 20071003
  Receipt Date: 20070924
  Transmission Date: 20080405
  Serious: Yes (Hospitalization)
  Sender: FDA-Public Use
  Company Number: HQWYE566605MAY05

PATIENT
  Age: 38 Year
  Sex: Female

DRUGS (2)
  1. PIPERACILLIN AND TAZOBACTAM [Suspect]
     Indication: ENTEROCUTANEOUS FISTULA
     Dosage: 3.375 G, UNKNOWN FREQUENCY
  2. LORAZEPAM [Suspect]
     Dosage: UNKNOWN
     Route: 042

REACTIONS (1)
  - HYPOTENSION [None]
